FAERS Safety Report 18948374 (Version 1)
Quarter: 2021Q1

REPORT INFORMATION
  Report Type: Spontaneous
  Country: US (occurrence: US)
  Receive Date: 20210226
  Receipt Date: 20210226
  Transmission Date: 20210420
  Serious: No
  Sender: FDA-Public Use
  Company Number: US-ROCHE-2572405

PATIENT
  Age: 60 Year
  Sex: Female

DRUGS (1)
  1. XOLAIR [Suspect]
     Active Substance: OMALIZUMAB
     Indication: URTICARIA
     Dosage: XOLAIR 150MG/ML PFS INJ
     Route: 058
     Dates: start: 201912

REACTIONS (5)
  - Hypoacusis [Unknown]
  - Influenza [Unknown]
  - Nasal congestion [Unknown]
  - Nasopharyngitis [Unknown]
  - Upper respiratory tract congestion [Unknown]

NARRATIVE: CASE EVENT DATE: 20200319
